FAERS Safety Report 21506465 (Version 1)
Quarter: 2022Q4

REPORT INFORMATION
  Report Type: Spontaneous
  Country: FR (occurrence: FR)
  Receive Date: 20221026
  Receipt Date: 20221026
  Transmission Date: 20230112
  Serious: Yes (Congenital Anomaly)
  Sender: FDA-Public Use
  Company Number: FR-ABBVIE-4175637

PATIENT
  Sex: Male

DRUGS (1)
  1. DEPAKOTE [Suspect]
     Active Substance: DIVALPROEX SODIUM
     Indication: Maternal exposure timing unspecified
     Dosage: 8 MONTHS 10 DAYS
     Route: 064
     Dates: start: 20021216, end: 20030825

REACTIONS (14)
  - Primary ciliary dyskinesia [Unknown]
  - Ear, nose and throat disorder [Unknown]
  - Oropharyngeal discomfort [Unknown]
  - Hypoacusis [Unknown]
  - Asthma [Unknown]
  - Inguinal hernia [Unknown]
  - Phobia [Unknown]
  - Unevaluable event [Unknown]
  - Adenoidectomy [Unknown]
  - Atrophy [Unknown]
  - Echolalia [Unknown]
  - Otitis media chronic [Unknown]
  - Facial asymmetry [Unknown]
  - Stereotypy [Unknown]
